FAERS Safety Report 8262193-8 (Version None)
Quarter: 2012Q2

REPORT INFORMATION
  Report Type: 
  Country: None (occurrence: None)
  Receive Date: 20120405
  Receipt Date: 20120326
  Transmission Date: 20120825
  Serious: Yes (Hospitalization, Other)
  Sender: FDA-Public Use
  Company Number: US-ROCHE-1053597

PATIENT
  Sex: Female

DRUGS (1)
  1. BONIVA [Suspect]
     Indication: PRODUCT USED FOR UNKNOWN INDICATION

REACTIONS (5)
  - PHARYNGEAL OEDEMA [None]
  - DYSPHAGIA [None]
  - HIATUS HERNIA [None]
  - MYOCARDIAL INFARCTION [None]
  - CHOKING [None]
